FAERS Safety Report 22216223 (Version 1)
Quarter: 2023Q2

REPORT INFORMATION
  Report Type: Spontaneous
  Country: ES (occurrence: ES)
  Receive Date: 20230417
  Receipt Date: 20230417
  Transmission Date: 20230721
  Serious: Yes (Life-Threatening, Hospitalization, Other)
  Sender: FDA-Public Use
  Company Number: ES-AEMPS-1353829

PATIENT
  Age: 83 Year
  Sex: Male
  Weight: 73.3 kg

DRUGS (12)
  1. DOCETAXEL [Suspect]
     Active Substance: DOCETAXEL
     Indication: Prostate cancer metastatic
     Dosage: UNK,EVERY 3 WEEKS
     Route: 042
     Dates: start: 20230223
  2. BISOPROLOL [Concomitant]
     Active Substance: BISOPROLOL
     Indication: Cardiac failure
     Dosage: 1.25 MILLIGRAM, ONCE A DAY(2.5MG HALF EVERY 24 HOURS)
     Route: 048
     Dates: start: 20171016
  3. DECAPEPTYL SEMESTRAL [Concomitant]
     Indication: Prostate cancer metastatic
     Dosage: 22.5 MILLIGRAM(1 EVERY 6 MONTHS)
     Route: 030
     Dates: start: 20211119
  4. ELIQUIS [Concomitant]
     Active Substance: APIXABAN
     Indication: Intracardiac thrombus
     Dosage: 2.5 MILLIGRAM, TWO TIMES A DAY
     Route: 048
     Dates: start: 20220412
  5. ENTRESTO [Concomitant]
     Active Substance: SACUBITRIL\VALSARTAN
     Indication: Cardiac failure
     Dosage: 0.5 DOSAGE FORM, TWO TIMES A DAY(24/26 MG 0.5-0-0.5)
     Route: 048
     Dates: start: 20220908
  6. SPIRONOLACTONE [Concomitant]
     Active Substance: SPIRONOLACTONE
     Indication: Cardiac failure
     Dosage: 25 MILLIGRAM, ONCE A DAY
     Route: 048
     Dates: start: 20220421
  7. FERROUS GLYCINE SULFATE [Concomitant]
     Active Substance: FERROUS GLYCINE SULFATE
     Indication: Chronic kidney disease
     Dosage: 100 MILLIGRAM, ONCE A DAY
     Route: 048
     Dates: start: 20211119
  8. FUROSEMIDE [Concomitant]
     Active Substance: FUROSEMIDE
     Indication: Cardiac failure
     Dosage: 40 MILLIGRAM, ONCE A DAY(40 MG EVERY 24 HOURS)
     Route: 048
     Dates: start: 20211119
  9. EZETIMIBE\ROSUVASTATIN ZINC [Concomitant]
     Active Substance: EZETIMIBE\ROSUVASTATIN ZINC
     Indication: Myocardial ischaemia
     Dosage: 1 DOSAGE FORM, ONCE A DAY
     Route: 048
     Dates: start: 20211119
  10. PREDNISONE [Concomitant]
     Active Substance: PREDNISONE
     Indication: Prostate cancer metastatic
     Dosage: 10 MILLIGRAM, ONCE A DAY(10 MG EVERY 24 HOURS)
     Route: 048
     Dates: start: 20230223
  11. PANTOPRAZOLE SODIUM [Concomitant]
     Active Substance: PANTOPRAZOLE SODIUM
     Indication: Gastrooesophageal reflux disease
     Dosage: 20 MILLIGRAM, ONCE A DAY(20MG EVERY 24 HOURS)
     Route: 048
     Dates: start: 20191018
  12. ROCALTROL [Concomitant]
     Active Substance: CALCITRIOL
     Indication: Chronic kidney disease
     Dosage: 0.25 MICROGRAM, ONCE A DAY(0.25 MCG 0-1-0)
     Route: 048
     Dates: start: 20211119

REACTIONS (2)
  - Agranulocytosis [Recovered/Resolved]
  - Cardiac failure acute [Recovering/Resolving]

NARRATIVE: CASE EVENT DATE: 20230319
